FAERS Safety Report 11108017 (Version 1)
Quarter: 2015Q2

REPORT INFORMATION
  Report Type: Report from Study
  Country: US (occurrence: US)
  Receive Date: 20150512
  Receipt Date: 20150512
  Transmission Date: 20150821
  Serious: Yes (Hospitalization)
  Sender: FDA-Public Use
  Company Number: US-ACTELION-A-US2014-109250

PATIENT
  Age: 64 Year
  Sex: Female

DRUGS (4)
  1. FLOLAN [Suspect]
     Active Substance: EPOPROSTENOL SODIUM
     Indication: PULMONARY ARTERIAL HYPERTENSION
     Dosage: 45 NG/KG, PER MIN
     Route: 042
     Dates: start: 20100628
  2. COUMADIN [Concomitant]
     Active Substance: WARFARIN SODIUM
  3. TRACLEER [Suspect]
     Active Substance: BOSENTAN\BOSENTAN MONOHYDRATE
     Indication: PULMONARY ARTERIAL HYPERTENSION
     Dosage: UNK
     Route: 048
  4. FLOLAN [Suspect]
     Active Substance: EPOPROSTENOL SODIUM
     Dosage: 41 NG/KG, PER MIN
     Route: 042

REACTIONS (2)
  - Epistaxis [Unknown]
  - Asthenia [Unknown]

NARRATIVE: CASE EVENT DATE: 20141125
